FAERS Safety Report 16048509 (Version 1)
Quarter: 2019Q1

REPORT INFORMATION
  Report Type: Spontaneous
  Country: US (occurrence: US)
  Receive Date: 20190307
  Receipt Date: 20190307
  Transmission Date: 20190418
  Serious: Yes (Death)
  Sender: FDA-Public Use
  Company Number: US-PFIZER INC-2019033794

PATIENT
  Age: 88 Year
  Sex: Female

DRUGS (1)
  1. TORISEL [Suspect]
     Active Substance: TEMSIROLIMUS
     Indication: OVARIAN CANCER METASTATIC
     Dosage: UNK
     Dates: start: 20180103

REACTIONS (2)
  - Death [Fatal]
  - Product use in unapproved indication [Unknown]
